FAERS Safety Report 5842969-4 (Version None)
Quarter: 2008Q3

REPORT INFORMATION
  Report Type: 
  Country: None (occurrence: None)
  Receive Date: 20080811
  Receipt Date: 20080725
  Transmission Date: 20090109
  Serious: Yes (Death)
  Sender: FDA-Public Use
  Company Number: 08-0002

PATIENT
  Age: 60 Year
  Sex: Male
  Weight: 43.0917 kg

DRUGS (12)
  1. CYSTADANE [Suspect]
     Indication: HOMOCYSTINURIA
     Dosage: 9 GM BID ORAL
     Route: 048
     Dates: start: 20071029, end: 20080414
  2. INSULIN (HUMAN REGULAR) [Concomitant]
  3. HYDROCHLOROTHIAZIDE [Concomitant]
  4. MIRTAZAPINE [Concomitant]
  5. PYRIDIUM [Concomitant]
  6. OLANCAPINE [Concomitant]
  7. DILTIAZEM HCL [Concomitant]
  8. ASPIRIN [Concomitant]
  9. VIT C [Concomitant]
  10. VICODIN [Concomitant]
  11. FOLIC ACID [Concomitant]
  12. MULTIVIT. [Concomitant]

REACTIONS (2)
  - LEUKAEMIA [None]
  - LOWER LIMB FRACTURE [None]
